FAERS Safety Report 5983615-9 (Version None)
Quarter: 2008Q4

REPORT INFORMATION
  Report Type: 
  Country: None (occurrence: None)
  Receive Date: 20081205
  Receipt Date: 20081205
  Transmission Date: 20090506
  Serious: No
  Sender: FDA-Public Use
  Company Number: None

PATIENT
  Sex: Male
  Weight: 89.8122 kg

DRUGS (1)
  1. BUDEPRION SR 150MG, TEVA [Suspect]
     Indication: DEPRESSION
     Dosage: 150MG ONE PO BID ORAL
     Route: 048

REACTIONS (1)
  - DRUG INEFFECTIVE [None]
